FAERS Safety Report 7336258-9 (Version None)
Quarter: 2011Q1

REPORT INFORMATION
  Report Type: 
  Country: None (occurrence: None)
  Receive Date: 20110307
  Receipt Date: 20110221
  Transmission Date: 20110831
  Serious: Yes (Death)
  Sender: FDA-Public Use
  Company Number: US-ACTELION-A-US2011-45190

PATIENT

DRUGS (5)
  1. PREDNISONE [Concomitant]
  2. SILDENAFIL [Concomitant]
  3. DIGOXIN [Concomitant]
  4. COUMADIN [Concomitant]
  5. VENTAVIS [Suspect]
     Indication: PULMONARY ARTERIAL HYPERTENSION
     Dosage: 10 UG, UNK
     Route: 055
     Dates: start: 20100701, end: 20110207

REACTIONS (3)
  - RIGHT VENTRICULAR FAILURE [None]
  - DYSPNOEA [None]
  - CARDIAC ARREST [None]
